FAERS Safety Report 8802674 (Version 1)
Quarter: 2012Q4

REPORT INFORMATION
  Report Type: 
  Country: US (occurrence: US)
  Receive Date: 20120921
  Receipt Date: 20120921
  Transmission Date: 20130627
  Serious: No
  Sender: FDA-Public Use
  Company Number: US-PFIZER INC-2012233582

PATIENT
  Age: 67 Year
  Sex: Female
  Weight: 114 kg

DRUGS (7)
  1. LYRICA [Suspect]
     Indication: POST HERPETIC NEURALGIA
     Dosage: UNK
     Dates: start: 20120830, end: 2012
  2. LYRICA [Suspect]
     Dosage: UNK
     Dates: start: 2012
  3. AMLODIPINE [Concomitant]
     Indication: HYPERTENSION
     Dosage: 5 mg, daily
  4. TRAMADOL HYDROCHLORIDE [Concomitant]
     Indication: POST HERPETIC NEURALGIA
     Dosage: 1-2 tablets of 50mg, 3x/day
  5. NITROSTAT [Concomitant]
     Dosage: 0.4 mg, as needed
     Route: 060
  6. EDECRIN [Concomitant]
     Dosage: 50 mg, daily
  7. MULTIVITAMINS [Concomitant]
     Dosage: 1 DF, 1x/day

REACTIONS (1)
  - Pain in jaw [Not Recovered/Not Resolved]
